FAERS Safety Report 14991822 (Version 2)
Quarter: 2018Q3

REPORT INFORMATION
  Report Type: Report from Study
  Country: US (occurrence: US)
  Receive Date: 20180608
  Receipt Date: 20180703
  Transmission Date: 20181010
  Serious: Yes (Hospitalization, Other)
  Sender: FDA-Public Use
  Company Number: US-GILEAD-2018-0343359

PATIENT
  Age: 59 Year
  Sex: Female

DRUGS (1)
  1. AMBRISENTAN [Suspect]
     Active Substance: AMBRISENTAN
     Indication: PRODUCT USED FOR UNKNOWN INDICATION
     Dosage: 5 MG, UNK
     Route: 065
     Dates: start: 20081105

REACTIONS (7)
  - Pneumonia [Unknown]
  - Staphylococcal infection [Unknown]
  - Blood glucose increased [Unknown]
  - Lung neoplasm malignant [Not Recovered/Not Resolved]
  - Hypertension [Unknown]
  - Malaise [Not Recovered/Not Resolved]
  - Pulmonary mass [Not Recovered/Not Resolved]
